FAERS Safety Report 4979933-3 (Version None)
Quarter: 2006Q2

REPORT INFORMATION
  Report Type: 
  Country: None (occurrence: None)
  Receive Date: 20060421
  Receipt Date: 20060310
  Transmission Date: 20061013
  Serious: Yes (Death, Hospitalization, Other)
  Sender: FDA-Public Use
  Company Number: US-MERCK-0603USA02104

PATIENT
  Age: 78 Year
  Sex: Male
  Weight: 132 kg

DRUGS (2)
  1. VIOXX [Suspect]
     Indication: ARTHRITIS
     Route: 048
     Dates: end: 20040406
  2. VIOXX [Suspect]
     Indication: BACK PAIN
     Route: 048
     Dates: end: 20040406

REACTIONS (4)
  - ARTHRALGIA [None]
  - CARDIAC DISORDER [None]
  - DEATH [None]
  - MYOCARDIAL INFARCTION [None]
